FAERS Safety Report 7730801-3 (Version None)
Quarter: 2011Q3

REPORT INFORMATION
  Report Type: 
  Country: None (occurrence: None)
  Receive Date: 20110906
  Receipt Date: 20110822
  Transmission Date: 20111222
  Serious: Yes (Other)
  Sender: FDA-Public Use
  Company Number: GB-BAYER-2011-069143

PATIENT
  Age: 22 Year
  Sex: Female
  Weight: 83 kg

DRUGS (1)
  1. CLOTRIMAZOLE [Suspect]
     Indication: CANDIDIASIS
     Dosage: X 1SYRINGE AND EXTERNAL CREAM FOR 3 NIGHTS
     Dates: start: 20110730, end: 20110802

REACTIONS (2)
  - VAGINAL HAEMORRHAGE [None]
  - DYSMENORRHOEA [None]
